FAERS Safety Report 9437212 (Version 1)
Quarter: 2013Q3

REPORT INFORMATION
  Report Type: Spontaneous
  Country: CN (occurrence: CN)
  Receive Date: 20130802
  Receipt Date: 20130802
  Transmission Date: 20140515
  Serious: Yes (Hospitalization, Other)
  Sender: FDA-Public Use
  Company Number: PHHY2013CN080545

PATIENT
  Age: 43 Year
  Sex: Male

DRUGS (1)
  1. DEFEROXAMINE [Suspect]
     Dosage: 25 MG KG^-1 D^-1
     Route: 042
     Dates: start: 20120115

REACTIONS (8)
  - Respiratory distress [Recovered/Resolved]
  - Lung infection [Unknown]
  - Interstitial lung disease [Unknown]
  - Cough [Recovered/Resolved]
  - Sputum discoloured [Unknown]
  - Respiratory rate increased [Unknown]
  - Cyanosis [Unknown]
  - Rales [Unknown]
